FAERS Safety Report 7892430-0 (Version None)
Quarter: 2011Q4

REPORT INFORMATION
  Report Type: 
  Country: None (occurrence: None)
  Receive Date: 20111102
  Receipt Date: 20111020
  Transmission Date: 20120403
  Serious: Yes (Hospitalization, Other)
  Sender: FDA-Public Use
  Company Number: CIP11001751

PATIENT
  Age: 67 Year
  Sex: Female

DRUGS (51)
  1. HYDROXYZINE [Concomitant]
  2. FLUCONAZOLE [Concomitant]
  3. SKELAXIN /00611501/ (METAXALONE) [Concomitant]
  4. PAXIL [Concomitant]
  5. VIOXX [Concomitant]
  6. LIPITOR [Concomitant]
  7. ACULAR /01001802/ (KETOROLAC TROMETHAMINE) [Concomitant]
  8. LOPROX (CICLOPIROX OLAMINE) [Concomitant]
  9. ALUMINIUM CHLORIDE (ALUMINIUM CHLORIDE) [Concomitant]
  10. CLOTRIMAZOLE W/BETAMETHASONE DIPROPIONAT (BETAMETHASONE DIPROPIONATE, [Concomitant]
  11. METHYLPREDNISOLONE [Concomitant]
  12. LEVAQUIN [Concomitant]
  13. DICLOFENAC SODIUM [Concomitant]
  14. TRAMADOL/APAP (PARACETAMOL, TRAMADOL HYDROCHLORIDE) [Concomitant]
  15. GLUCOSAMINE (GLUCOSAMINE) [Concomitant]
  16. ACTONEL [Suspect]
     Dosage: 30 MG, ORAL
     Route: 048
     Dates: start: 20021212, end: 20031006
  17. PROMETHAZINE HCL AND CODEINE PHOSPHATE [Concomitant]
  18. ACTONEL [Suspect]
     Dosage: 35 MG, ORAL
     Route: 048
     Dates: start: 20021030, end: 20080301
  19. ETHEDENT (SODIUM FLUORIDE) [Concomitant]
  20. HYDROCODONE W/APAP (HYDROCODONE, PARACETAMOL) [Concomitant]
  21. CIPRO [Concomitant]
  22. ACIPHEX [Concomitant]
  23. MELOXICAM [Concomitant]
  24. MULTIVITAMIN /01229101/ (VITAMINS NOS) [Concomitant]
  25. FOSAMAX [Suspect]
     Dosage: 10 MG, ORAL 70 MG, ORAL
     Route: 048
     Dates: start: 20001213
  26. FOSAMAX [Suspect]
     Dosage: 10 MG, ORAL 70 MG, ORAL
     Route: 048
     Dates: start: 20000209, end: 20020806
  27. BEXTRA /01401501/ (VALDECOXIB) [Concomitant]
  28. OXYCODONE AND ACETAMINOPHEN [Concomitant]
  29. LIDODERM [Concomitant]
  30. CRESTOR [Concomitant]
  31. CELEBREX [Concomitant]
  32. CRANBERRY /01512301/ (VACCINIUM MACROCARPON) [Concomitant]
  33. ERY-TAB (ERYTHROMYCIN) [Concomitant]
  34. CLOBETASOL (CLOBETASOL) [Concomitant]
  35. TRAMADOL HCL [Concomitant]
  36. NITROFURANTOIN [Concomitant]
  37. LOVENOX [Concomitant]
  38. ASPIRIN [Concomitant]
  39. ROXICET [Concomitant]
  40. NABUMETONE [Concomitant]
  41. TRIAMCINOLONE [Concomitant]
  42. DIPROLENE (BETAMETHASONE DIPROPIONATE) [Concomitant]
  43. ZOVIRAX /00587301/ (ACICLOVIR) [Concomitant]
  44. FLUOXETINE HYDROCHLORIDE [Concomitant]
  45. ZITHROMAX [Concomitant]
  46. NASONEX [Concomitant]
  47. XALATAN /01297301/ (LATANOPROST) [Concomitant]
  48. ZOCOR [Concomitant]
  49. NEXIUM /01479303/ (ESOMEPRAZOLE SODIUM) [Concomitant]
  50. CALCIUM CARBONATE [Concomitant]
  51. ALEVE (NAPROXEN SODIUM) [Concomitant]

REACTIONS (15)
  - FALL [None]
  - GAIT DISTURBANCE [None]
  - BUNION [None]
  - METASTATIC NEOPLASM [None]
  - FRACTURE NONUNION [None]
  - OSTEONECROSIS [None]
  - STRESS FRACTURE [None]
  - PAIN IN EXTREMITY [None]
  - FOOT FRACTURE [None]
  - SPINAL COMPRESSION FRACTURE [None]
  - OSTEOGENESIS IMPERFECTA [None]
  - HYPERPARATHYROIDISM [None]
  - IMPAIRED HEALING [None]
  - COLLAGEN DISORDER [None]
  - FEMUR FRACTURE [None]
